FAERS Safety Report 14638151 (Version 1)
Quarter: 2018Q1

REPORT INFORMATION
  Report Type: Spontaneous
  Country: US (occurrence: US)
  Receive Date: 20180314
  Receipt Date: 20180314
  Transmission Date: 20180509
  Serious: No
  Sender: FDA-Public Use
  Company Number: None

PATIENT
  Age: 57 Year
  Sex: Female
  Weight: 90 kg

DRUGS (7)
  1. HCTZ [Concomitant]
     Active Substance: HYDROCHLOROTHIAZIDE
  2. IMIQUIOD 5% CREAM [Suspect]
     Active Substance: IMIQUIMOD
     Indication: HYPERKERATOSIS
     Dosage: ?          QUANTITY:.25 PACKET;OTHER FREQUENCY:3 TIMES/WK @ NIGHT;?
     Route: 061
     Dates: start: 20180306, end: 20180312
  3. LYSINOPRIL [Concomitant]
  4. PREVACID [Concomitant]
     Active Substance: LANSOPRAZOLE
  5. ESTRADIOL. [Concomitant]
     Active Substance: ESTRADIOL
  6. VITAMIN D [Concomitant]
     Active Substance: CHOLECALCIFEROL
  7. MULTI VIATMIN [Concomitant]

REACTIONS (3)
  - Application site pain [None]
  - Application site swelling [None]
  - Oral herpes [None]

NARRATIVE: CASE EVENT DATE: 20180310
